FAERS Safety Report 23636025 (Version 1)
Quarter: 2024Q1

REPORT INFORMATION
  Report Type: Spontaneous
  Country: US (occurrence: US)
  Receive Date: 20240315
  Receipt Date: 20240315
  Transmission Date: 20240410
  Serious: No
  Sender: FDA-Public Use
  Company Number: US-TEVA-VS-3138055

PATIENT
  Sex: Female

DRUGS (3)
  1. LIDOCAINE [Suspect]
     Active Substance: LIDOCAINE
     Indication: Muscle spasms
     Route: 062
  2. LIDOCAINE [Suspect]
     Active Substance: LIDOCAINE
     Indication: Arthralgia
  3. LIDOCAINE [Suspect]
     Active Substance: LIDOCAINE
     Indication: Pain in extremity

REACTIONS (4)
  - Product prescribing issue [Unknown]
  - Product use in unapproved indication [Unknown]
  - Product adhesion issue [Unknown]
  - Application site pain [Unknown]
